FAERS Safety Report 19983760 (Version 4)
Quarter: 2022Q2

REPORT INFORMATION
  Report Type: Spontaneous
  Country: CA (occurrence: CA)
  Receive Date: 20211021
  Receipt Date: 20220429
  Transmission Date: 20220721
  Serious: Yes (Death, Hospitalization, Other)
  Sender: FDA-Public Use
  Company Number: CA-NAPPMUNDI-GBR-2021-0091530

PATIENT
  Age: 24 Year
  Sex: Female

DRUGS (10)
  1. MORPHINE SULFATE [Suspect]
     Active Substance: MORPHINE SULFATE
     Indication: Overdose
     Dosage: 60 MG, UNK
     Route: 048
  2. MORPHINE SULFATE [Suspect]
     Active Substance: MORPHINE SULFATE
     Dosage: 60 MG, UNK
     Route: 048
  3. MORPHINE SULFATE [Suspect]
     Active Substance: MORPHINE SULFATE
     Dosage: 60 MG, UNK
     Route: 048
  4. GABAPENTIN [Suspect]
     Active Substance: GABAPENTIN
     Indication: Product used for unknown indication
     Dosage: 25.5 G, UNK
     Route: 048
  5. GABAPENTIN [Suspect]
     Active Substance: GABAPENTIN
     Indication: Overdose
     Dosage: UNK
     Route: 065
  6. GABAPENTIN [Suspect]
     Active Substance: GABAPENTIN
     Dosage: 25.5 G, UNK
     Route: 048
  7. ACETAMINOPHEN [Suspect]
     Active Substance: ACETAMINOPHEN
     Indication: Product used for unknown indication
     Dosage: 50 G, UNK
     Route: 048
  8. ACETAMINOPHEN [Suspect]
     Active Substance: ACETAMINOPHEN
     Indication: Overdose
     Dosage: UNKNOWN
     Route: 065
  9. ACETAMINOPHEN [Suspect]
     Active Substance: ACETAMINOPHEN
     Dosage: UNK
     Route: 065
  10. ACETAMINOPHEN [Suspect]
     Active Substance: ACETAMINOPHEN
     Dosage: 50 G, UNK
     Route: 048

REACTIONS (21)
  - Analgesic drug level increased [Fatal]
  - Acute hepatic failure [Fatal]
  - Brain oedema [Fatal]
  - Coagulopathy [Fatal]
  - Depressed level of consciousness [Fatal]
  - Death [Fatal]
  - Encephalopathy [Fatal]
  - Hypoglycaemia [Fatal]
  - Lactic acidosis [Fatal]
  - Mental status changes [Fatal]
  - Overdose [Fatal]
  - Cerebral haemorrhage [Fatal]
  - Diffuse axonal injury [Fatal]
  - Ileus [Fatal]
  - Hepatic failure [Fatal]
  - Metabolic acidosis [Fatal]
  - Continuous haemodiafiltration [Fatal]
  - Endotracheal intubation [Fatal]
  - Haemodialysis [Fatal]
  - Intentional overdose [Fatal]
  - Renal replacement therapy [Fatal]
